FAERS Safety Report 8272807-4 (Version None)
Quarter: 2012Q2

REPORT INFORMATION
  Report Type: 
  Country: None (occurrence: None)
  Receive Date: 20120411
  Receipt Date: 20120402
  Transmission Date: 20120825
  Serious: No
  Sender: FDA-Public Use
  Company Number: US-BIOGENIDEC-2011BI016659

PATIENT
  Sex: Male

DRUGS (1)
  1. TYSABRI [Suspect]
     Indication: MULTIPLE SCLEROSIS
     Route: 042
     Dates: start: 20110414, end: 20120222

REACTIONS (15)
  - FATIGUE [None]
  - NEPHROLITHIASIS [None]
  - BACK PAIN [None]
  - DECREASED APPETITE [None]
  - PAIN [None]
  - FOREIGN BODY [None]
  - MULTIPLE SCLEROSIS [None]
  - GAIT DISTURBANCE [None]
  - MUSCULOSKELETAL STIFFNESS [None]
  - PARAESTHESIA [None]
  - BLOOD URINE PRESENT [None]
  - BALANCE DISORDER [None]
  - HYPOAESTHESIA [None]
  - NAUSEA [None]
  - DRUG INEFFECTIVE [None]
